FAERS Safety Report 15468736 (Version 4)
Quarter: 2018Q4

REPORT INFORMATION
  Report Type: Spontaneous
  Country: ET (occurrence: ET)
  Receive Date: 20181005
  Receipt Date: 20181211
  Transmission Date: 20190204
  Serious: Yes (Death, Life-Threatening, Other)
  Sender: FDA-Public Use
  Company Number: ET-JNJFOC-20180933499

PATIENT
  Age: 60 Year
  Sex: Female
  Weight: 52 kg

DRUGS (10)
  1. PYRAZINAMIDE. [Suspect]
     Active Substance: PYRAZINAMIDE
     Indication: TUBERCULOSIS
     Route: 048
     Dates: start: 20180606, end: 20181002
  2. SIRTURO [Suspect]
     Active Substance: BEDAQUILINE FUMARATE
     Indication: TUBERCULOSIS
     Route: 048
     Dates: start: 20180606, end: 20180620
  3. SIRTURO [Suspect]
     Active Substance: BEDAQUILINE FUMARATE
     Indication: TUBERCULOSIS
     Route: 048
     Dates: start: 20180620, end: 20181002
  4. CLOFAZIMINE [Suspect]
     Active Substance: CLOFAZIMINE
     Indication: TUBERCULOSIS
     Route: 048
     Dates: start: 20180606, end: 20181002
  5. GLIBENCLAMIDE [Concomitant]
     Active Substance: GLYBURIDE
     Indication: TYPE 2 DIABETES MELLITUS
     Dosage: FOR LAST 2 YEARS
     Route: 065
     Dates: start: 201806
  6. LEVOFLOXACIN. [Suspect]
     Active Substance: LEVOFLOXACIN
     Indication: TUBERCULOSIS
     Route: 048
     Dates: start: 20180606, end: 20181002
  7. METFORMIN [Concomitant]
     Active Substance: METFORMIN HYDROCHLORIDE
     Indication: TYPE 2 DIABETES MELLITUS
     Dosage: FOR LAST 2 YEARS
     Route: 065
  8. PROTIONAMIDE [Suspect]
     Active Substance: PROTIONAMIDE
     Indication: TUBERCULOSIS
     Route: 048
     Dates: start: 20180606, end: 20181002
  9. INSULIN [Concomitant]
     Active Substance: INSULIN NOS
     Indication: TYPE 2 DIABETES MELLITUS
     Dosage: 30, 15 SUBCUTANEOUS EVERY 12 HOURS
     Route: 058
     Dates: start: 20171120
  10. VITAMIN B6 [Concomitant]
     Active Substance: PYRIDOXINE HYDROCHLORIDE
     Dosage: 30, 15 SUBCUTANEOUS EVERY 12 HOURS
     Route: 048
     Dates: start: 20171120, end: 20181002

REACTIONS (3)
  - Azotaemia [Fatal]
  - Pneumonia [Unknown]
  - Anaemia [Unknown]

NARRATIVE: CASE EVENT DATE: 2018
